FAERS Safety Report 8596555-6 (Version None)
Quarter: 2012Q3

REPORT INFORMATION
  Report Type: 
  Country: None (occurrence: None)
  Receive Date: 20120815
  Receipt Date: 20120802
  Transmission Date: 20120928
  Serious: No
  Sender: FDA-Public Use
  Company Number: US-ASTRAZENECA-2012SE38811

PATIENT
  Sex: Male

DRUGS (3)
  1. BRILINTA [Suspect]
     Route: 048
  2. ASPIRIN [Concomitant]
  3. EFFIENT [Concomitant]

REACTIONS (3)
  - MUSCULAR WEAKNESS [None]
  - DYSPNOEA [None]
  - MYALGIA [None]
